FAERS Safety Report 6121494-X (Version None)
Quarter: 2009Q1

REPORT INFORMATION
  Report Type: 
  Country: None (occurrence: None)
  Receive Date: 20090313
  Receipt Date: 20090302
  Transmission Date: 20090719
  Serious: Yes (Other)
  Sender: FDA-Public Use
  Company Number: GXKR2009TW02679

PATIENT
  Age: 45 Year
  Sex: Female

DRUGS (5)
  1. DOXORUBICIN HCL [Suspect]
     Indication: B-CELL LYMPHOMA STAGE II
     Dosage: EVERY 3 WEEKS
     Dates: end: 20060626
  2. VINCRISTINE [Suspect]
     Indication: B-CELL LYMPHOMA STAGE II
     Dosage: EVERY 3 WEEKS
  3. PREDNISOLONE [Suspect]
     Indication: B-CELL LYMPHOMA STAGE II
     Dosage: EVERY 3 WEEKS
  4. CYCLOPHOSPHAMIDE [Suspect]
     Indication: B-CELL LYMPHOMA STAGE II
     Dosage: EVERY 3 WEEKS
  5. RITUXIMAB (RITUXIMAB) [Suspect]
     Indication: B-CELL LYMPHOMA STAGE II
     Dosage: 375 MG/M2, SINCE 3RD CYCLE, UNKNOWN

REACTIONS (3)
  - FEBRILE NEUTROPENIA [None]
  - PNEUMOCYSTIS JIROVECI PNEUMONIA [None]
  - TACHYPNOEA [None]
